FAERS Safety Report 9477012 (Version 1)
Quarter: 2013Q3

REPORT INFORMATION
  Report Type: Report from Study
  Country: BR (occurrence: BR)
  Receive Date: 20130826
  Receipt Date: 20130826
  Transmission Date: 20140515
  Serious: Yes (Other)
  Sender: FDA-Public Use
  Company Number: ALCN2013BR004237

PATIENT
  Sex: 0

DRUGS (7)
  1. TRAVATAN [Suspect]
     Indication: GLAUCOMA
     Dosage: 1 GTT, QHS
     Route: 047
  2. AZOPT [Concomitant]
     Indication: GLAUCOMA
     Dosage: 1 GTT, QD
     Route: 047
     Dates: start: 2005, end: 2006
  3. AZOPT [Concomitant]
     Indication: GLAUCOMA
  4. ALPHAGAN P [Concomitant]
     Indication: GLAUCOMA
     Dosage: 1 GTT, BID
     Route: 047
     Dates: start: 2005
  5. MONOCORDIL [Concomitant]
     Indication: CARDIAC DISORDER
     Dosage: UNK, QD
     Route: 048
     Dates: start: 2012
  6. CONCARDIO [Concomitant]
     Indication: CARDIAC DISORDER
     Dosage: UNK, QD
     Route: 048
     Dates: start: 2012
  7. PLAVIX [Concomitant]
     Indication: THROMBOSIS PROPHYLAXIS
     Dosage: UNK, QD
     Dates: start: 2012

REACTIONS (3)
  - Cardiac arrest [Unknown]
  - Visual acuity reduced [Unknown]
  - Arrhythmia [Unknown]
